FAERS Safety Report 21399423 (Version 13)
Quarter: 2025Q1

REPORT INFORMATION
  Report Type: Report from Study
  Country: US (occurrence: US)
  Receive Date: 20221001
  Receipt Date: 20250318
  Transmission Date: 20250409
  Serious: Yes (Other)
  Sender: TAKEDA
  Company Number: US-TAKEDA-2022TUS030974

PATIENT
  Age: 58 Year
  Sex: Female
  Weight: 58 kg

DRUGS (24)
  1. HUMAN IMMUNOGLOBULIN G [Suspect]
     Active Substance: HUMAN IMMUNOGLOBULIN G
     Indication: Immunodeficiency common variable
     Dosage: 7 GRAM, 1/WEEK
     Dates: start: 20220119
  2. ACETAMINOPHEN [Concomitant]
     Active Substance: ACETAMINOPHEN
  3. FAMOTIDINE [Concomitant]
     Active Substance: FAMOTIDINE
  4. IBANDRONATE SODIUM [Concomitant]
     Active Substance: IBANDRONATE SODIUM
  5. LEVOCETIRIZINE DIHYDROCHLORIDE [Concomitant]
     Active Substance: LEVOCETIRIZINE DIHYDROCHLORIDE
  6. NABUMETONE [Concomitant]
     Active Substance: NABUMETONE
  7. AZATHIOPRINE [Concomitant]
     Active Substance: AZATHIOPRINE
  8. TEZSPIRE [Concomitant]
     Active Substance: TEZEPELUMAB-EKKO
  9. VITAMINS [Concomitant]
     Active Substance: VITAMINS
  10. LISINOPRIL [Concomitant]
     Active Substance: LISINOPRIL
  11. HYDROXYZINE HYDROCHLORIDE [Concomitant]
     Active Substance: HYDROXYZINE HYDROCHLORIDE
  12. ALBUTEROL SULFATE [Concomitant]
     Active Substance: ALBUTEROL SULFATE
  13. CALCIUM\CHOLECALCIFEROL [Concomitant]
     Active Substance: CALCIUM\CHOLECALCIFEROL
  14. YUVAFEM [Concomitant]
     Active Substance: ESTRADIOL HEMIHYDRATE
  15. LIDOCAINE [Concomitant]
     Active Substance: LIDOCAINE
  16. PROMETHAZINE HYDROCHLORIDE [Concomitant]
     Active Substance: PROMETHAZINE HYDROCHLORIDE
  17. DIPHENHYDRAMINE HYDROCHLORIDE [Concomitant]
     Active Substance: DIPHENHYDRAMINE HYDROCHLORIDE
  18. GABAPENTIN [Concomitant]
     Active Substance: GABAPENTIN
  19. ONDANSETRON HYDROCHLORIDE [Concomitant]
     Active Substance: ONDANSETRON HYDROCHLORIDE
  20. ADVAIR HFA [Concomitant]
     Active Substance: FLUTICASONE PROPIONATE\SALMETEROL XINAFOATE
  21. KRILL OIL [Concomitant]
     Active Substance: DIETARY SUPPLEMENT\KRILL OIL
  22. DIPHENHYDRAMINE [Concomitant]
     Active Substance: DIPHENHYDRAMINE
  23. EPINEPHRINE [Concomitant]
     Active Substance: EPINEPHRINE
  24. Lmx [Concomitant]

REACTIONS (12)
  - Cellulitis [Unknown]
  - Pneumonia [Recovered/Resolved]
  - Respiratory tract infection [Unknown]
  - Illness [Unknown]
  - Limb injury [Unknown]
  - Eye infection [Unknown]
  - Bronchitis [Unknown]
  - Respiratory syncytial virus infection [Unknown]
  - Insurance issue [Unknown]
  - Product use issue [Unknown]
  - Device infusion issue [Unknown]
  - Upper respiratory tract infection [Unknown]

NARRATIVE: CASE EVENT DATE: 20220423
